FAERS Safety Report 19055438 (Version 1)
Quarter: 2021Q1

REPORT INFORMATION
  Report Type: Spontaneous
  Country: GB (occurrence: GB)
  Receive Date: 20210325
  Receipt Date: 20210325
  Transmission Date: 20210420
  Serious: Yes (Other)
  Sender: FDA-Public Use
  Company Number: GB-MYLANLABS-2021M1014962

PATIENT
  Age: 36 Year
  Sex: Male
  Weight: 155 kg

DRUGS (4)
  1. OMEPRAZOLE. [Concomitant]
     Active Substance: OMEPRAZOLE
     Dosage: FOR STOMACH
     Dates: start: 20190823
  2. TIMODINE                           /01524101/ [Concomitant]
     Dosage: TO BE APPLIED TO THE AFFECTED AREA(S)
     Dates: start: 20210211, end: 20210218
  3. FOLIC ACID. [Concomitant]
     Active Substance: FOLIC ACID
     Dosage: EXCPET METHOTEXATE DAY...
     Dates: start: 20190823
  4. NAPROXEN. [Suspect]
     Active Substance: NAPROXEN
     Indication: PAIN
     Dosage: 250 MILLIGRAM, BID
     Dates: start: 20190903

REACTIONS (1)
  - Mouth ulceration [Recovered/Resolved]

NARRATIVE: CASE EVENT DATE: 20210308
